FAERS Safety Report 4291487-6 (Version None)
Quarter: 2004Q1

REPORT INFORMATION
  Report Type: 
  Country: None (occurrence: None)
  Receive Date: 20040126
  Receipt Date: 20031113
  Transmission Date: 20041129
  Serious: No
  Sender: FDA-Public Use
  Company Number: USA030946625

PATIENT
  Age: 83 Year
  Sex: Female

DRUGS (11)
  1. FORTEO [Suspect]
     Dosage: 20 UG/DAY
     Dates: start: 20030903
  2. ASPIRIN [Concomitant]
  3. LASIX [Concomitant]
  4. PREVACID [Concomitant]
  5. ZESTRIL [Concomitant]
  6. SYNTHROID [Concomitant]
  7. BETAPACE [Concomitant]
  8. NORVASC [Concomitant]
  9. LIPITOR [Concomitant]
  10. ZOLOFT [Concomitant]
  11. ULTRACET [Concomitant]

REACTIONS (6)
  - EXTRASYSTOLES [None]
  - HEADACHE [None]
  - HEART RATE INCREASED [None]
  - INJECTION SITE ERYTHEMA [None]
  - NERVOUSNESS [None]
  - PSYCHOMOTOR HYPERACTIVITY [None]
